FAERS Safety Report 21423916 (Version 1)
Quarter: 2022Q4

REPORT INFORMATION
  Report Type: Spontaneous
  Country: AU (occurrence: AU)
  Receive Date: 20221007
  Receipt Date: 20221007
  Transmission Date: 20230113
  Serious: Yes (Other)
  Sender: FDA-Public Use
  Company Number: AU-MYLANLABS-2022M1111710

PATIENT
  Age: 66 Year
  Sex: Female

DRUGS (5)
  1. PACLITAXEL [Suspect]
     Active Substance: PACLITAXEL
     Indication: Invasive ductal breast carcinoma
     Dosage: UNK, CYCLE, RECEIVED 12 CYCLES
     Route: 065
  2. CHLORAMPHENICOL [Suspect]
     Active Substance: CHLORAMPHENICOL
     Indication: Uveitis
     Dosage: UNK (EYE DROPS)
     Route: 047
  3. CHLORAMPHENICOL [Suspect]
     Active Substance: CHLORAMPHENICOL
     Indication: Retinal vasculitis
  4. CYCLOPHOSPHAMIDE [Concomitant]
     Active Substance: CYCLOPHOSPHAMIDE
     Indication: Invasive ductal breast carcinoma
     Dosage: UNK, CYCLE, RECEIVED 4 CYCLES
     Route: 065
  5. DOXORUBICIN [Concomitant]
     Active Substance: DOXORUBICIN
     Indication: Invasive ductal breast carcinoma
     Dosage: UNK, CYCLE, RECEIVED 4 CYCLES
     Route: 065

REACTIONS (8)
  - Uveitis [Recovered/Resolved]
  - Neuropathy peripheral [Recovering/Resolving]
  - Retinal vasculitis [Unknown]
  - Drug ineffective [Unknown]
  - Self-medication [Unknown]
  - Onychomadesis [Unknown]
  - Hyperkeratosis [Unknown]
  - Onycholysis [Unknown]
